FAERS Safety Report 14522275 (Version 2)
Quarter: 2018Q1

REPORT INFORMATION
  Report Type: Spontaneous
  Country: US (occurrence: US)
  Receive Date: 20180212
  Receipt Date: 20180305
  Transmission Date: 20180509
  Serious: Yes (Other)
  Sender: FDA-Public Use
  Company Number: US-GILEAD-2018-0320096

PATIENT
  Age: 56 Year
  Sex: Female
  Weight: 60.32 kg

DRUGS (1)
  1. HARVONI [Suspect]
     Active Substance: LEDIPASVIR\SOFOSBUVIR
     Indication: PRODUCT USED FOR UNKNOWN INDICATION
     Dosage: UNK
     Route: 065
     Dates: start: 20180112, end: 20180219

REACTIONS (25)
  - Vaginal laceration [Unknown]
  - Chapped lips [Unknown]
  - Oropharyngeal pain [Unknown]
  - Feeling cold [Unknown]
  - Nausea [Unknown]
  - Adnexa uteri pain [Unknown]
  - Stomatitis [Unknown]
  - Dyspnoea [Unknown]
  - Palpitations [Unknown]
  - Product use complaint [Unknown]
  - Cough [Unknown]
  - Throat irritation [Unknown]
  - Eye irritation [Unknown]
  - Vulvovaginal dryness [Unknown]
  - Dry skin [Unknown]
  - Ear discomfort [Unknown]
  - Weight decreased [Unknown]
  - Chest discomfort [Unknown]
  - Burning sensation [Unknown]
  - Skin fissures [Unknown]
  - Oral pain [Unknown]
  - Decreased appetite [Unknown]
  - Headache [Unknown]
  - Abdominal pain upper [Unknown]
  - Diarrhoea [Unknown]

NARRATIVE: CASE EVENT DATE: 20180112
